FAERS Safety Report 7301132-0 (Version None)
Quarter: 2011Q1

REPORT INFORMATION
  Report Type: 
  Country: None (occurrence: None)
  Receive Date: 20110218
  Receipt Date: 20101227
  Transmission Date: 20110831
  Serious: Yes (Other)
  Sender: FDA-Public Use
  Company Number: US-BAYER-201013341NA

PATIENT
  Sex: Female
  Weight: 98 kg

DRUGS (12)
  1. DIETARY SUPPLEMENTS [Concomitant]
     Route: 065
  2. HEPARIN [Concomitant]
     Route: 065
     Dates: start: 20030201
  3. ANTIBIOTICS [Concomitant]
     Route: 065
  4. ALBUTEROL [Concomitant]
     Route: 065
  5. ANALGESICS [Concomitant]
     Indication: MIGRAINE
     Route: 065
  6. COUMADIN [Concomitant]
     Route: 065
     Dates: start: 20030101, end: 20030215
  7. LIPITOR [Concomitant]
     Route: 065
  8. NSAID'S [Concomitant]
     Route: 065
     Dates: start: 19970101
  9. METFORMIN [Concomitant]
     Indication: POLYCYSTIC OVARIES
     Route: 065
     Dates: start: 20080101
  10. YASMIN [Suspect]
     Indication: MENSTRUATION IRREGULAR
     Route: 048
     Dates: start: 20000101, end: 20020615
  11. TYLENOL [Concomitant]
     Indication: PAIN
     Route: 065
  12. AMBIEN [Concomitant]
     Route: 065

REACTIONS (3)
  - PHLEBITIS [None]
  - DEEP VEIN THROMBOSIS [None]
  - PAIN IN EXTREMITY [None]
